FAERS Safety Report 10633492 (Version 2)
Quarter: 2014Q4

REPORT INFORMATION
  Report Type: Spontaneous
  Country: US (occurrence: US)
  Receive Date: 20141205
  Receipt Date: 20141226
  Transmission Date: 20150529
  Serious: Yes (Hospitalization)
  Sender: FDA-Public Use
  Company Number: US-SA-2014SA156355

PATIENT
  Age: 67 Year
  Sex: Male
  Weight: 87.1 kg

DRUGS (20)
  1. VITAMIN D3 [Concomitant]
     Active Substance: CHOLECALCIFEROL
     Dosage: DOSE:3000 UNIT(S)
     Route: 048
  2. LASIX [Concomitant]
     Active Substance: FUROSEMIDE
     Dosage: TAKES 1 TAB BY MOUTH 2 TIMES DAILY AS NEEDED.
     Route: 048
  3. CARDIZEM CD [Concomitant]
     Active Substance: DILTIAZEM HYDROCHLORIDE
     Route: 048
  4. PEPCID [Concomitant]
     Active Substance: FAMOTIDINE
     Route: 048
  5. AMBIEN [Concomitant]
     Active Substance: ZOLPIDEM TARTRATE
     Route: 048
  6. NEURONTIN [Concomitant]
     Active Substance: GABAPENTIN
     Route: 048
  7. INSULIN ASPART [Concomitant]
     Active Substance: INSULIN ASPART
     Route: 058
  8. GLUCOSE [Concomitant]
     Active Substance: DEXTROSE
     Indication: HYPOGLYCAEMIA
     Dosage: TAKE 4 TABS BY MOUTH OR USE AS DIRECTED.
     Route: 048
  9. DELTASONE [Concomitant]
     Active Substance: PREDNISONE
     Route: 048
  10. PRAVACHOL [Concomitant]
     Active Substance: PRAVASTATIN SODIUM
     Dosage: EVERY NIGHT AT BEDTIME
     Route: 048
  11. AZATHIOPRINE. [Concomitant]
     Active Substance: AZATHIOPRINE
     Route: 048
  12. FISH OIL [Concomitant]
     Active Substance: FISH OIL
     Route: 048
  13. DELTASONE [Concomitant]
     Active Substance: PREDNISONE
     Route: 048
  14. CLONIDINE HYDROCHLORIDE. [Concomitant]
     Active Substance: CLONIDINE HYDROCHLORIDE
     Route: 048
  15. BACTRIM [Concomitant]
     Active Substance: SULFAMETHOXAZOLE\TRIMETHOPRIM
     Dosage: TAKE 1 TAB BY MOUTH EVERY MON, WED AND FRI.
     Route: 048
  16. PERCOCET [Concomitant]
     Active Substance: ACETAMINOPHEN\OXYCODONE HYDROCHLORIDE
     Indication: PAIN
     Route: 048
  17. THYMOGLOBULIN [Suspect]
     Active Substance: LAPINE T-LYMPHOCYTE IMMUNE GLOBULIN
     Indication: RENAL TRANSPLANT
     Route: 041
     Dates: start: 20141023, end: 20141027
  18. ASPIRIN. [Concomitant]
     Active Substance: ASPIRIN
     Route: 048
  19. PROGRAF [Concomitant]
     Active Substance: TACROLIMUS\TACROLIMUS ANHYDROUS
     Dosage: TAKES 2-3 CAPSULES BY MOUTH EVERY 12 HOURS. 3MG IN A.M. AND 2 MG IN P.M
     Route: 048
  20. INSULIN DETEMIR [Concomitant]
     Active Substance: INSULIN DETEMIR
     Dosage: BENEATH THE SKIN ONCE A DAY. DOSE:40 UNIT(S)

REACTIONS (4)
  - Rheumatoid arthritis [Recovered/Resolved]
  - Abasia [Recovered/Resolved]
  - Serum sickness [Unknown]
  - Arthralgia [Recovered/Resolved]

NARRATIVE: CASE EVENT DATE: 20141103
